FAERS Safety Report 12849313 (Version 8)
Quarter: 2016Q4

REPORT INFORMATION
  Report Type: Spontaneous
  Country: US (occurrence: US)
  Receive Date: 20161014
  Receipt Date: 20161229
  Transmission Date: 20170207
  Serious: Yes (Death, Hospitalization, Other)
  Sender: FDA-Public Use
  Company Number: US-ACTELION-A-US2016-143552

PATIENT
  Age: 53 Year
  Sex: Female

DRUGS (8)
  1. OPSUMIT [Suspect]
     Active Substance: MACITENTAN
     Indication: PULMONARY ARTERIAL HYPERTENSION
     Dosage: 10 MG, QD
     Route: 048
     Dates: start: 20150406, end: 20161222
  2. UPTRAVI [Suspect]
     Active Substance: SELEXIPAG
     Dosage: 800 MCG, BID
     Route: 048
  3. UPTRAVI [Suspect]
     Active Substance: SELEXIPAG
     Dosage: 200 MCG, BID
     Route: 048
     Dates: start: 20161017
  4. UPTRAVI [Suspect]
     Active Substance: SELEXIPAG
     Indication: PULMONARY ARTERIAL HYPERTENSION
     Dosage: 1600 MCG, BID
     Route: 048
     Dates: end: 20161222
  5. ADCIRCA [Concomitant]
     Active Substance: TADALAFIL
  6. TYVASO [Concomitant]
     Active Substance: TREPROSTINIL
  7. UPTRAVI [Suspect]
     Active Substance: SELEXIPAG
     Dosage: 1000 MCG, QD
     Route: 048
  8. TROKENDI [Suspect]
     Active Substance: TOPIRAMATE
     Indication: PRODUCT USED FOR UNKNOWN INDICATION
     Dosage: 25 MG, UNK
     Route: 065

REACTIONS (25)
  - Simple partial seizures [Unknown]
  - Bladder prolapse [Unknown]
  - Migraine [Unknown]
  - Vertigo [Unknown]
  - Headache [Unknown]
  - Asthenia [Unknown]
  - Dizziness [Not Recovered/Not Resolved]
  - Joint injury [Unknown]
  - Death [Fatal]
  - Seizure [Unknown]
  - Fatigue [Unknown]
  - Myoclonus [Unknown]
  - Neuropathy peripheral [Unknown]
  - Fall [Unknown]
  - Myalgia [Unknown]
  - Amnesia [Unknown]
  - Somnolence [Unknown]
  - Vision blurred [Unknown]
  - Inner ear disorder [Unknown]
  - Dysarthria [Unknown]
  - Feeling abnormal [Unknown]
  - Visual impairment [Unknown]
  - Back pain [Unknown]
  - Menopause [Unknown]
  - Dry mouth [Unknown]

NARRATIVE: CASE EVENT DATE: 20161003
